FAERS Safety Report 8232896-X (Version None)
Quarter: 2012Q1

REPORT INFORMATION
  Report Type: 
  Country: None (occurrence: None)
  Receive Date: 20120324
  Receipt Date: 20120313
  Transmission Date: 20120608
  Serious: Yes (Other)
  Sender: FDA-Public Use
  Company Number: VE-AMGEN-VENSP2012015048

PATIENT
  Age: 52 Year
  Sex: Female
  Weight: 63.5 kg

DRUGS (6)
  1. METHOTREXATE [Concomitant]
     Indication: RHEUMATOID ARTHRITIS
     Dosage: 20 MG, UNK
     Dates: start: 20020101
  2. ACETAMINOPHEN [Concomitant]
     Dosage: UNK
     Route: 048
  3. LANSOPRAZOLE [Concomitant]
     Dosage: UNK
  4. CALCIO                             /00751519/ [Concomitant]
     Dosage: UNK
  5. ENBREL [Suspect]
     Indication: RHEUMATOID ARTHRITIS
     Dosage: UNK
     Route: 058
     Dates: start: 20070901, end: 20111001
  6. FOLIC ACID [Concomitant]
     Dosage: UNK

REACTIONS (1)
  - ENDOMETRIAL CANCER [None]
